FAERS Safety Report 11601470 (Version 1)
Quarter: 2015Q4

REPORT INFORMATION
  Report Type: Spontaneous
  Country: US (occurrence: US)
  Receive Date: 20151006
  Receipt Date: 20151006
  Transmission Date: 20160304
  Serious: No
  Sender: FDA-Public Use
  Company Number: US-AMGEN-USASP2014088565

PATIENT
  Age: 58 Year
  Sex: Female

DRUGS (6)
  1. BIOTIN [Concomitant]
     Active Substance: BIOTIN
  2. MULTIVITAMIN                       /00097801/ [Concomitant]
     Active Substance: VITAMINS
  3. CALCIUM                            /00060701/ [Concomitant]
     Active Substance: CALCIUM
  4. PROLIA [Suspect]
     Active Substance: DENOSUMAB
     Indication: OSTEOPOROSIS POSTMENOPAUSAL
     Dosage: UNK
     Route: 065
     Dates: start: 20141112
  5. VITAMIN D                          /00107901/ [Concomitant]
     Active Substance: ERGOCALCIFEROL
  6. COLACE [Concomitant]
     Active Substance: DOCUSATE SODIUM

REACTIONS (8)
  - Paraesthesia oral [Recovered/Resolved]
  - Hyperhidrosis [Recovered/Resolved]
  - Eyelid oedema [Recovering/Resolving]
  - Palpitations [Recovered/Resolved]
  - Blood pressure increased [Recovered/Resolved]
  - Dizziness [Unknown]
  - Flushing [Recovered/Resolved]
  - Heart rate increased [Unknown]

NARRATIVE: CASE EVENT DATE: 20141112
